FAERS Safety Report 8201267-4 (Version None)
Quarter: 2012Q1

REPORT INFORMATION
  Report Type: 
  Country: None (occurrence: None)
  Receive Date: 20120312
  Receipt Date: 20120306
  Transmission Date: 20120608
  Serious: Yes (Other)
  Sender: FDA-Public Use
  Company Number: PHHY2012JP020322

PATIENT
  Age: 60 Year
  Sex: Male

DRUGS (1)
  1. DIOVAN [Suspect]
     Dosage: UNK
     Route: 048

REACTIONS (1)
  - HAEMOLYTIC ANAEMIA [None]
